FAERS Safety Report 16101408 (Version 3)
Quarter: 2019Q2

REPORT INFORMATION
  Report Type: Spontaneous
  Country: DE (occurrence: DE)
  Receive Date: 20190321
  Receipt Date: 20190427
  Transmission Date: 20190711
  Serious: Yes (Other)
  Sender: FDA-Public Use
  Company Number: DE-ACCORD-114135

PATIENT
  Age: 69 Year
  Sex: Female

DRUGS (8)
  1. BUDIPINE [Suspect]
     Active Substance: BUDIPINE
     Indication: PARKINSONISM
     Dosage: THREE TIMES A DAY (ONE AT 8:00AM, ONE AT 12:00 NOON AND ONE AT 6:00PM)
     Route: 065
  2. LORAZEPAM. [Concomitant]
     Active Substance: LORAZEPAM
     Indication: DEPRESSION
     Dosage: IF REQUIRED, 1/2-2 TABLETS WITHIN 24 H
     Route: 065
  3. LEVOTHYROXINE. [Concomitant]
     Active Substance: LEVOTHYROXINE
     Indication: HYPOTHYROIDISM
     Dosage: 1/2 A DAY AT 7:00 AM
     Route: 065
  4. PRAMIPEXOLE/PRAMIPEXOLE DIHYDROCHLORIDE [Suspect]
     Active Substance: PRAMIPEXOLE DIHYDROCHLORIDE
     Indication: PARKINSON^S DISEASE
  5. RAMIPRIL. [Concomitant]
     Active Substance: RAMIPRIL
     Indication: HYPERTENSION
     Dosage: AT 6:00 PM
     Route: 065
  6. PROPRANOLOL [Concomitant]
     Active Substance: PROPRANOLOL HYDROCHLORIDE
     Indication: HYPERTENSION
     Dosage: 40 MILLIGRAM, BID
     Route: 065
  7. CARBIDOPA/LEVODOPA [Suspect]
     Active Substance: CARBIDOPA\LEVODOPA
     Indication: PARKINSONISM
     Dosage: 100/25MG TABLETS 5 TIMES A DAY (ONE TABLET AT 7:00AM, ONE TABLET AT 10:00AM, ONE TABLET AT 2:0.
     Route: 048
  8. CLONAZEPAM. [Suspect]
     Active Substance: CLONAZEPAM
     Indication: SLEEP DISORDER
     Dosage: 0.5 MILLIGRAM, QD AT NIGHT
     Route: 065

REACTIONS (10)
  - Psychotic disorder [Unknown]
  - On and off phenomenon [Unknown]
  - Dizziness [Recovered/Resolved]
  - Psychotic symptom [Unknown]
  - Hallucination [Unknown]
  - Depressive symptom [Unknown]
  - Delirium [Unknown]
  - Drug ineffective [Unknown]
  - Mobility decreased [Unknown]
  - Fatigue [Recovered/Resolved]
